FAERS Safety Report 13670558 (Version 5)
Quarter: 2018Q1

REPORT INFORMATION
  Report Type: Report from Study
  Country: FR (occurrence: FR)
  Receive Date: 20170620
  Receipt Date: 20180117
  Transmission Date: 20180508
  Serious: Yes (Hospitalization)
  Sender: FDA-Public Use
  Company Number: FR-EXELIXIS-XL18417009340

PATIENT
  Age: 75 Year
  Sex: Male
  Weight: 65 kg

DRUGS (23)
  1. VALSARTAN. [Concomitant]
     Active Substance: VALSARTAN
  2. OROZAMUDOL [Concomitant]
     Active Substance: TRAMADOL
  3. ALPRAZOLAM. [Concomitant]
     Active Substance: ALPRAZOLAM
  4. BLINDED XL184 [Suspect]
     Active Substance: CABOZANTINIB
     Indication: MEDULLARY THYROID CANCER
     Dosage: UNK
     Route: 048
     Dates: start: 20170518, end: 20170605
  5. LANSOPRAZOLE. [Concomitant]
     Active Substance: LANSOPRAZOLE
  6. UVEDOSE [Concomitant]
     Active Substance: CHOLECALCIFEROL
  7. PRIMPERAN [Concomitant]
     Active Substance: METOCLOPRAMIDE HYDROCHLORIDE
  8. AVODART [Concomitant]
     Active Substance: DUTASTERIDE
  9. CRESTOR [Concomitant]
     Active Substance: ROSUVASTATIN CALCIUM
  10. IMODIUM [Concomitant]
     Active Substance: LOPERAMIDE HYDROCHLORIDE
  11. BISOCE [Concomitant]
     Active Substance: BISOPROLOL
  12. GAVISCON [Concomitant]
     Active Substance: ALUMINUM HYDROXIDE\MAGNESIUM CARBONATE
  13. CALCIDOSE [Concomitant]
     Active Substance: CALCIUM CARBONATE
  14. LEVOTHYROX [Concomitant]
     Active Substance: LEVOTHYROXINE
  15. DOLIPRANE [Concomitant]
     Active Substance: ACETAMINOPHEN
  16. BLINDED XL184 [Suspect]
     Active Substance: CABOZANTINIB
     Indication: MEDULLARY THYROID CANCER
     Dosage: UNK
     Route: 048
     Dates: start: 20170518, end: 20170605
  17. FRESUBIN [Concomitant]
     Active Substance: AMINO ACIDS\DEXTROSE\ELECTROLYTES NOS\SOYBEAN OIL\VITAMINS
  18. SMECTA [Concomitant]
     Active Substance: MONTMORILLONITE
  19. BROPAN [Concomitant]
  20. SPASFON [Concomitant]
     Active Substance: PHLOROGLUCINOL\1,3,5-TRIMETHOXYBENZENE
  21. OMEXEL [Concomitant]
     Active Substance: TAMSULOSIN HYDROCHLORIDE
  22. ACUPAN [Concomitant]
     Active Substance: NEFOPAM HYDROCHLORIDE
  23. MECIR [Concomitant]
     Active Substance: TAMSULOSIN HYDROCHLORIDE

REACTIONS (2)
  - Abdominal abscess [Recovered/Resolved]
  - Diverticulitis [Recovered/Resolved]

NARRATIVE: CASE EVENT DATE: 20170606
